FAERS Safety Report 4423551-2 (Version None)
Quarter: 2004Q3

REPORT INFORMATION
  Report Type: 
  Country: None (occurrence: None)
  Receive Date: 20040805
  Receipt Date: 20040722
  Transmission Date: 20050211
  Serious: Yes (Death, Life-Threatening)
  Sender: FDA-Public Use
  Company Number: GB-JNJFOC-20040201077

PATIENT
  Age: 60 Year
  Sex: Female

DRUGS (1)
  1. REMICADE [Suspect]
     Indication: RHEUMATOID ARTHRITIS
     Dosage: 224 MG, INTRAVENOUS
     Route: 042
     Dates: start: 20011029, end: 20020401

REACTIONS (6)
  - CHEST WALL PAIN [None]
  - DECUBITUS ULCER [None]
  - DYSPNOEA EXACERBATED [None]
  - PNEUMONIA [None]
  - SEPSIS [None]
  - SEPTIC SHOCK [None]
